FAERS Safety Report 9626278 (Version 1)
Quarter: 2013Q4

REPORT INFORMATION
  Report Type: Spontaneous
  Country: US (occurrence: None)
  Receive Date: 20131015
  Receipt Date: 20131015
  Transmission Date: 20140711
  Serious: No
  Sender: FDA-Public Use
  Company Number: None

PATIENT
  Age: 69 Year
  Sex: Female
  Weight: 70.76 kg

DRUGS (9)
  1. LIVALO [Suspect]
     Indication: BLOOD CHOLESTEROL INCREASED
     Route: 048
     Dates: start: 20130911, end: 20130916
  2. LISINOPRIL/HCTZ [Concomitant]
  3. OMPERAZOLE ER [Concomitant]
  4. OXYBUTYNIN [Concomitant]
  5. VIT D3 [Concomitant]
  6. MULTIVITAMINS [Concomitant]
  7. VIT C [Concomitant]
  8. VIT E [Concomitant]
  9. KYHAL [Concomitant]

REACTIONS (2)
  - Pruritus generalised [None]
  - Insomnia [None]
